FAERS Safety Report 5333636-4 (Version None)
Quarter: 2007Q2

REPORT INFORMATION
  Report Type: 
  Country: None (occurrence: None)
  Receive Date: 20070524
  Receipt Date: 20070516
  Transmission Date: 20071010
  Serious: Yes (Hospitalization)
  Sender: FDA-Public Use
  Company Number: US-ABBOTT-07P-163-0368650-00

PATIENT
  Sex: Female
  Weight: 90.8 kg

DRUGS (2)
  1. HUMIRA [Suspect]
     Indication: REITER'S SYNDROME
     Route: 058
     Dates: start: 20061019, end: 20070111
  2. HUMIRA [Suspect]
     Route: 058
     Dates: start: 20070505

REACTIONS (2)
  - ARTHRALGIA [None]
  - INJECTION SITE PAIN [None]
